FAERS Safety Report 5321778-9 (Version None)
Quarter: 2007Q2

REPORT INFORMATION
  Report Type: 
  Country: None (occurrence: None)
  Receive Date: 20070507
  Receipt Date: 20070427
  Transmission Date: 20071010
  Serious: Yes (Other)
  Sender: FDA-Public Use
  Company Number: 2007SP006285

PATIENT
  Age: 44 Year
  Sex: Female
  Weight: 97.977 kg

DRUGS (4)
  1. PEG-INTRON [Suspect]
     Indication: HEPATITIS C
     Dosage: 150 MCG; QW;
     Dates: start: 20050201, end: 20060101
  2. PEG-INTRON [Suspect]
     Indication: HEPATITIS C
     Dosage: 150 MCG; QW;
     Dates: start: 20070310
  3. REBETOL [Suspect]
     Indication: HEPATITIS C
     Dosage: SEE IMAGE
     Route: 048
     Dates: start: 20050201, end: 20060101
  4. REBETOL [Suspect]
     Indication: HEPATITIS C
     Dosage: SEE IMAGE
     Route: 048
     Dates: start: 20070310

REACTIONS (21)
  - ABASIA [None]
  - ANOREXIA [None]
  - ASTHENIA [None]
  - BLISTER [None]
  - BLOOD POTASSIUM DECREASED [None]
  - BONE PAIN [None]
  - DRY SKIN [None]
  - FATIGUE [None]
  - GLOSSODYNIA [None]
  - HEART RATE INCREASED [None]
  - HYPERAESTHESIA [None]
  - HYPERHIDROSIS [None]
  - INFLUENZA LIKE ILLNESS [None]
  - LOSS OF CONSCIOUSNESS [None]
  - NAUSEA [None]
  - OEDEMA PERIPHERAL [None]
  - PRURITUS [None]
  - RED BLOOD CELL ABNORMALITY [None]
  - URINARY INCONTINENCE [None]
  - VOMITING [None]
  - WEIGHT DECREASED [None]
